FAERS Safety Report 8254122-8 (Version None)
Quarter: 2012Q2

REPORT INFORMATION
  Report Type: 
  Country: None (occurrence: None)
  Receive Date: 20120402
  Receipt Date: 20120320
  Transmission Date: 20120825
  Serious: No
  Sender: FDA-Public Use
  Company Number: US-AMGEN-USASP2012017935

PATIENT
  Age: 50 Year
  Sex: Female

DRUGS (1)
  1. ENBREL [Suspect]
     Indication: PSORIATIC ARTHROPATHY
     Dosage: 50 MG, QWK
     Dates: start: 20120227, end: 20120301

REACTIONS (6)
  - SKIN LESION [None]
  - INJECTION SITE HAEMORRHAGE [None]
  - INFLUENZA [None]
  - CYSTITIS [None]
  - MALAISE [None]
  - PSORIASIS [None]
